FAERS Safety Report 6270254-8 (Version None)
Quarter: 2009Q3

REPORT INFORMATION
  Report Type: 
  Country: None (occurrence: None)
  Receive Date: 20090716
  Receipt Date: 20070607
  Transmission Date: 20100115
  Serious: Yes (Hospitalization, Other)
  Sender: FDA-Public Use
  Company Number: US-ASTRAZENECA-2006UW11024

PATIENT
  Age: 15935 Day
  Sex: Female
  Weight: 65.3 kg

DRUGS (62)
  1. SEROQUEL [Suspect]
     Indication: SCHIZOPHRENIA
     Dosage: 25 TO 600 MG
     Route: 048
     Dates: start: 20000907
  2. SEROQUEL [Suspect]
     Route: 048
     Dates: start: 20030101, end: 20060101
  3. THORAZINE [Concomitant]
     Dates: start: 19980101
  4. TRILAFON [Concomitant]
     Dates: start: 20030101, end: 20060101
  5. ACETAMINOPHEN [Concomitant]
     Dosage: 500 MG TO 650 MG
     Route: 048
     Dates: start: 20010329
  6. BUSPAR [Concomitant]
     Route: 048
  7. CALCITRIOL [Concomitant]
     Route: 048
  8. CALCIUM CARBONATE [Concomitant]
     Route: 048
  9. ENALAPRIL MALEATE [Concomitant]
     Route: 048
  10. CELEXA [Concomitant]
     Route: 048
  11. DUONEB [Concomitant]
  12. POTASSIUM CHLORIDE [Concomitant]
     Indication: HYPERKALAEMIA
  13. SODIUM CHLORIDE [Concomitant]
     Dosage: RESTRICTED TO 2 GRAMS PER DAY
     Route: 048
  14. NAPROSYN [Concomitant]
     Route: 048
  15. LISINOPRIL [Concomitant]
     Dosage: 5 MG TO 20 MG PER DAY
     Route: 048
     Dates: start: 20010601
  16. TRAZODONE HCL [Concomitant]
     Route: 048
  17. PAXIL [Concomitant]
     Dosage: 40 MG TO 60 MG PER DAY
     Route: 048
     Dates: start: 20010603
  18. AMLODIPINE [Concomitant]
     Route: 048
  19. GLUCOPHAGE [Concomitant]
     Dosage: 1000 MG TO 2000 MG PER DAY
     Route: 048
     Dates: start: 20010601
  20. GLIPIZIDE [Concomitant]
     Dosage: 10 MG TO 20 MG PER DAY
     Route: 048
     Dates: start: 20010601
  21. VITAMIN E [Concomitant]
     Dosage: 800 IU TO 1600 IU PER DAY
     Route: 048
     Dates: start: 20010602
  22. LACTULOSE [Concomitant]
     Dosage: 10 GM/15 ML SOLUTION 30 CC TWO TIMES A DAY
     Route: 048
  23. PERCOCET [Concomitant]
     Dosage: 5 MG/325 MG
     Route: 048
  24. RANITIDINE HCL [Concomitant]
  25. FOLIC ACID [Concomitant]
     Route: 048
  26. THIAMINE HCL [Concomitant]
     Dosage: 50 MG TO 400 MG PER DAY
     Route: 048
     Dates: start: 20010529
  27. ZOFRAN [Concomitant]
     Route: 042
  28. GEODON [Concomitant]
     Dosage: 20 MG TO 60 MG
     Dates: start: 20020303
  29. CAPTOPRIL [Concomitant]
  30. IBUPROFEN [Concomitant]
  31. FLUPHENAZINE [Concomitant]
     Dosage: 25 MG/ML
     Route: 030
     Dates: start: 20030603
  32. INDERAL [Concomitant]
     Dosage: 40 MG TO 80 MG  PER DAY
     Route: 048
     Dates: start: 20010601
  33. COGENTIN [Concomitant]
     Indication: SCHIZOPHRENIA
     Dosage: 3 MG TO 4 MG PER DAY
     Route: 048
  34. WELCHOL [Concomitant]
     Dosage: 625 MG TO 1875 MG
     Route: 048
  35. RISPERDAL [Concomitant]
     Dosage: 1 MG TO 4 MG PER DAY
     Route: 048
     Dates: start: 20030602
  36. REMERON [Concomitant]
     Dosage: 15 MG TO 50 MG
     Route: 048
     Dates: start: 20030601
  37. DEPAKOTE [Concomitant]
     Dosage: 1000 MG TO 1500 MG PER DAY
     Route: 048
     Dates: start: 20030602
  38. ATENOLOL [Concomitant]
     Dosage: 50 MG TO 100 MG PER DAY
     Route: 048
  39. NOVOLOG [Concomitant]
  40. LANTUS [Concomitant]
     Route: 058
  41. PRILOSEC [Concomitant]
     Dosage: 20 MG TO 40 MG PER DAY
     Route: 048
  42. ZYPREXA [Concomitant]
     Dosage: 10 MG TO 15 MG PER DAY
     Route: 048
     Dates: start: 20010601
  43. WELLBUTRIN [Concomitant]
     Route: 048
     Dates: start: 20010530
  44. ARTANE [Concomitant]
     Dosage: 10 TO 15 MG PER DAY
     Route: 048
  45. BROMOCRIPTIN MESILATE [Concomitant]
     Route: 048
  46. OXYCODONE HCL [Concomitant]
  47. ATARAX [Concomitant]
     Route: 048
  48. MAALOX PLUS [Concomitant]
     Route: 048
     Dates: start: 20010529
  49. PHENOBARBITAL [Concomitant]
     Dosage: 120 MG PER 0.92 ML
     Route: 030
     Dates: start: 20010629
  50. PHENOBARBITAL [Concomitant]
     Dosage: 30 MG TO 60 MG
     Route: 048
  51. ZOLPIDEM [Concomitant]
     Indication: SLEEP DISORDER
     Route: 048
     Dates: start: 20010630
  52. ZALEPLON [Concomitant]
     Route: 048
     Dates: start: 20030601
  53. HALDOL [Concomitant]
     Dates: start: 20020302
  54. HALDOL [Concomitant]
     Route: 048
     Dates: start: 20020302
  55. ATIVAN [Concomitant]
     Indication: ANXIETY
     Dosage: 2 MG PER ML
     Route: 030
  56. ATIVAN [Concomitant]
     Route: 048
  57. BENADRYL [Concomitant]
     Dosage: 50 MG PER ML
     Route: 030
  58. BENADRYL [Concomitant]
     Route: 048
  59. COLACE [Concomitant]
     Dosage: 100 MG TO 200 MG
     Route: 048
  60. MORPHINE [Concomitant]
     Dosage: 2 MG TO 10 MG
  61. REGLAN [Concomitant]
  62. CLONIDINE [Concomitant]

REACTIONS (8)
  - CHOLECYSTITIS ACUTE [None]
  - DIABETIC RETINOPATHY [None]
  - NEUROLEPTIC MALIGNANT SYNDROME [None]
  - PANCREATITIS [None]
  - PANCREATITIS ACUTE [None]
  - PANCREATITIS CHRONIC [None]
  - TYPE 2 DIABETES MELLITUS [None]
  - VISION BLURRED [None]
